FAERS Safety Report 8217470-3 (Version None)
Quarter: 2012Q1

REPORT INFORMATION
  Report Type: 
  Country: None (occurrence: None)
  Receive Date: 20120314
  Receipt Date: 20120305
  Transmission Date: 20120608
  Serious: Yes (Other)
  Sender: FDA-Public Use
  Company Number: AUR-APL-2012-01333

PATIENT
  Age: 72 Year
  Sex: Male
  Weight: 83.9 kg

DRUGS (3)
  1. PREPARATION H MAXIMUM STRENGTH (PRAMOCAINE HYDROCHLORIDE) [Suspect]
     Indication: HAEMORRHOIDS
  2. PHENYLEPHRINE HCL [Suspect]
     Indication: HAEMORRHOIDS
  3. LISINOPRIL [Suspect]
     Indication: HYPERTENSION
     Dosage: (20 MG,1 D)
     Dates: start: 20111201

REACTIONS (5)
  - HYPERTENSION [None]
  - APPLICATION SITE IRRITATION [None]
  - DRUG INEFFECTIVE [None]
  - APPLICATION SITE PAIN [None]
  - CEREBROVASCULAR ACCIDENT [None]
